FAERS Safety Report 16025162 (Version 5)
Quarter: 2019Q2

REPORT INFORMATION
  Report Type: Spontaneous
  Country: US (occurrence: US)
  Receive Date: 20190301
  Receipt Date: 20190613
  Transmission Date: 20190711
  Serious: No
  Sender: FDA-Public Use
  Company Number: US-SA-2019SA055639

PATIENT
  Age: 54 Year
  Sex: Female

DRUGS (2)
  1. DUPIXENT [Suspect]
     Active Substance: DUPILUMAB
     Indication: ASTHMA
     Dosage: UNK
     Route: 058
     Dates: start: 20190301, end: 20190302
  2. DUPIXENT [Suspect]
     Active Substance: DUPILUMAB
     Indication: ECZEMA
     Dosage: 300 MG, 1X
     Dates: start: 20190222, end: 20190222

REACTIONS (12)
  - Paraesthesia oral [Unknown]
  - General physical health deterioration [Unknown]
  - Injection site pain [Recovered/Resolved]
  - Injection site mass [Unknown]
  - Fear of injection [Unknown]
  - Hypoaesthesia oral [Unknown]
  - Mass [Recovered/Resolved]
  - Injection site swelling [Unknown]
  - Rash erythematous [Recovered/Resolved]
  - Hypersensitivity [Unknown]
  - Condition aggravated [Recovered/Resolved]
  - Incorrect dose administered [Unknown]

NARRATIVE: CASE EVENT DATE: 20190301
